FAERS Safety Report 6958401-3 (Version None)
Quarter: 2010Q3

REPORT INFORMATION
  Report Type: 
  Country: None (occurrence: None)
  Receive Date: 20100831
  Receipt Date: 20100819
  Transmission Date: 20110219
  Serious: Yes (Hospitalization)
  Sender: FDA-Public Use
  Company Number: NL-US-EMD SERONO, INC.-7014791

PATIENT
  Sex: Female
  Weight: 59 kg

DRUGS (3)
  1. GONAL-F [Suspect]
     Indication: IN VITRO FERTILISATION
     Dosage: + SOLVENT 1 ML
     Dates: start: 20100614, end: 20100702
  2. DECAPEPTYL [Suspect]
     Indication: IN VITRO FERTILISATION
     Dosage: + SOLVENT 1 ML
     Dates: start: 20100614, end: 20100702
  3. ZOLPIDEM [Concomitant]
     Dates: start: 20100629

REACTIONS (2)
  - ANXIETY [None]
  - DEPRESSED MOOD [None]
